FAERS Safety Report 16348134 (Version 2)
Quarter: 2019Q3

REPORT INFORMATION
  Report Type: Spontaneous
  Country: US (occurrence: US)
  Receive Date: 20190523
  Receipt Date: 20190709
  Transmission Date: 20191004
  Serious: Yes (Hospitalization)
  Sender: FDA-Public Use
  Company Number: US-SA-2019SA134182

PATIENT
  Age: 48 Year
  Sex: Male

DRUGS (1)
  1. SEVELAMER SALT NOT SPECIFIED [Suspect]
     Active Substance: SEVELAMER
     Indication: PRODUCT USED FOR UNKNOWN INDICATION
     Dosage: 250 MG
     Route: 048

REACTIONS (7)
  - Gastrointestinal injury [Unknown]
  - Gastric ulcer [Unknown]
  - Melaena [Unknown]
  - Crystal deposit intestine [Unknown]
  - Gastric mucosa erythema [Unknown]
  - Haemoglobin decreased [Unknown]
  - Abdominal pain [Unknown]
